FAERS Safety Report 16825682 (Version 1)
Quarter: 2019Q3

REPORT INFORMATION
  Report Type: Spontaneous
  Country: GB (occurrence: GB)
  Receive Date: 20190919
  Receipt Date: 20190919
  Transmission Date: 20191005
  Serious: Yes (Life-Threatening, Hospitalization)
  Sender: FDA-Public Use
  Company Number: GB-TEVA-2019-GB-1108956

PATIENT
  Age: 74 Year

DRUGS (13)
  1. SILDENAFIL. [Suspect]
     Active Substance: SILDENAFIL
     Dosage: 150 MG
     Dates: start: 201904
  2. LISINOPRIL. [Concomitant]
     Active Substance: LISINOPRIL
     Dosage: 10 MG
  3. ALFUZOSIN [Concomitant]
     Active Substance: ALFUZOSIN
     Dosage: AT NIGHT, 10 MG
  4. LORATADINE. [Concomitant]
     Active Substance: LORATADINE
     Dosage: 10 MG
  5. CALCICHEW D3 [Concomitant]
     Active Substance: CALCIUM\CHOLECALCIFEROL
     Dosage: 2 DOSAGE FORMS
  6. SILDENAFIL. [Suspect]
     Active Substance: SILDENAFIL
     Indication: SYSTEMIC SCLERODERMA
     Dosage: 75 MG
     Dates: start: 201902, end: 201904
  7. SIMVASTATIN. [Concomitant]
     Active Substance: SIMVASTATIN
     Dosage: 10 MG
  8. BICALUTAMIDE. [Concomitant]
     Active Substance: BICALUTAMIDE
     Dosage: 150 MG
  9. TRAVOPROST. [Concomitant]
     Active Substance: TRAVOPROST
     Dosage: BOTH EYES AT NIGHT, 1 GTT
  10. CORACTEN XL [Concomitant]
     Active Substance: NIFEDIPINE
     Dosage: 30 MG
  11. OMEPRAZOLE. [Concomitant]
     Active Substance: OMEPRAZOLE
     Dosage: 40 MG
  12. ACETYLSALICYLIC ACID [Concomitant]
     Active Substance: ASPIRIN
     Dosage: 75 MG
  13. FERROUS FUMARATE [Concomitant]
     Active Substance: FERROUS FUMARATE
     Dosage: 420 MG

REACTIONS (2)
  - Dyspnoea [Unknown]
  - Acute myocardial infarction [Recovering/Resolving]

NARRATIVE: CASE EVENT DATE: 20190602
